FAERS Safety Report 6379873-1 (Version None)
Quarter: 2009Q3

REPORT INFORMATION
  Report Type: 
  Country: None (occurrence: None)
  Receive Date: 20090928
  Receipt Date: 20090916
  Transmission Date: 20100115
  Serious: Yes (Hospitalization, Other)
  Sender: FDA-Public Use
  Company Number: PHHY2009IE20148

PATIENT
  Sex: Female
  Weight: 47 kg

DRUGS (7)
  1. EXJADE [Suspect]
     Indication: MYELODYSPLASTIC SYNDROME
     Dosage: 1000 MG DAILY
     Route: 048
     Dates: start: 20090217, end: 20090309
  2. PROCHLORPERAZINE [Concomitant]
     Indication: NAUSEA
     Dosage: 5 MG, TID
     Route: 048
  3. ALLOPURINOL [Concomitant]
     Indication: HYPERURICAEMIA
     Dosage: 100 MG DAILY
     Route: 048
  4. TRIMETAZIDINE [Concomitant]
     Indication: MYOCARDIAL ISCHAEMIA
     Dosage: 20 MG DAILY
     Route: 048
     Dates: start: 20011101, end: 20090311
  5. FUROSEMIDE [Concomitant]
     Dosage: DAILY
     Route: 048
     Dates: start: 19990901, end: 20090311
  6. BISOPROLOL FUMARATE [Concomitant]
     Dosage: 2.5 MG DAILY
     Route: 048
     Dates: start: 20040501, end: 20090311
  7. ASPIRIN [Concomitant]
     Dosage: 25 MG DAILY
     Route: 048

REACTIONS (3)
  - BLOOD CREATININE INCREASED [None]
  - BLOOD PRESSURE DIASTOLIC DECREASED [None]
  - DEHYDRATION [None]
